FAERS Safety Report 9949138 (Version 2)
Quarter: 2014Q1

REPORT INFORMATION
  Report Type: Spontaneous
  Country: US (occurrence: US)
  Receive Date: 20140304
  Receipt Date: 20140304
  Transmission Date: 20141002
  Serious: Yes (Death, Hospitalization, Other)
  Sender: FDA-Public Use
  Company Number: US-CELGENEUS-163-POMAL-14013865

PATIENT
  Age: 66 Year
  Sex: Male
  Weight: 81.6 kg

DRUGS (22)
  1. POMALYST [Suspect]
     Indication: PLASMA CELL MYELOMA
     Dosage: 4 MILLIGRAM
     Route: 048
     Dates: start: 20131104, end: 201401
  2. UBIQUINONE [Concomitant]
     Indication: PRODUCT USED FOR UNKNOWN INDICATION
     Dosage: 200 MILLIGRAM
     Route: 065
  3. BACTRIM DS [Concomitant]
     Indication: ANTIFUNGAL PROPHYLAXIS
     Route: 065
  4. ACYCLOVIR [Concomitant]
     Indication: ANTIVIRAL PROPHYLAXIS
     Dosage: 800
     Route: 065
  5. ATENOLOL [Concomitant]
     Indication: PRODUCT USED FOR UNKNOWN INDICATION
     Dosage: 100
     Route: 065
  6. BIFLAVONOID [Concomitant]
     Indication: PRODUCT USED FOR UNKNOWN INDICATION
     Dosage: 500
     Route: 065
  7. GLUCOSAMINE WITH CHONDROITIN [Concomitant]
     Indication: PRODUCT USED FOR UNKNOWN INDICATION
     Dosage: 1000
     Route: 065
  8. PROCRIT [Concomitant]
     Indication: PRODUCT USED FOR UNKNOWN INDICATION
     Dosage: 40,000 UNITS
     Route: 065
     Dates: start: 201008
  9. FOLIC ACID [Concomitant]
     Indication: PRODUCT USED FOR UNKNOWN INDICATION
     Dosage: .8
     Route: 065
  10. CULTURELLE [Concomitant]
     Indication: PRODUCT USED FOR UNKNOWN INDICATION
     Dosage: 2 TABLET
     Route: 065
  11. OMEGA 3 FATTY ACID [Concomitant]
     Indication: PRODUCT USED FOR UNKNOWN INDICATION
     Dosage: 1000 MILLIGRAM
     Route: 065
  12. MULTIVITAMINS WITH MINERAL [Concomitant]
     Indication: PRODUCT USED FOR UNKNOWN INDICATION
     Route: 065
  13. ZOFRAN [Concomitant]
     Indication: PRODUCT USED FOR UNKNOWN INDICATION
  14. AREDIA [Concomitant]
     Indication: PRODUCT USED FOR UNKNOWN INDICATION
     Route: 041
     Dates: start: 201008
  15. MAXAIR [Concomitant]
     Indication: PRODUCT USED FOR UNKNOWN INDICATION
     Dosage: 2 PUFFS
     Route: 065
  16. DEXAMETHASONE [Concomitant]
     Indication: PLASMA CELL MYELOMA
     Route: 065
     Dates: start: 200408
  17. DEXAMETHASONE [Concomitant]
     Route: 065
     Dates: start: 200503
  18. DEXAMETHASONE [Concomitant]
     Route: 065
     Dates: start: 2007, end: 2008
  19. DEXAMETHASONE [Concomitant]
     Route: 065
     Dates: start: 201008, end: 201103
  20. DEXAMETHASONE [Concomitant]
     Route: 065
     Dates: start: 201109, end: 201208
  21. DEXAMETHASONE [Concomitant]
     Dosage: 9 MILLIGRAM
     Route: 065
  22. ANDROGEL [Concomitant]
     Indication: PRODUCT USED FOR UNKNOWN INDICATION
     Dosage: 1 PUMP
     Route: 065

REACTIONS (6)
  - Pulmonary hypertension [Fatal]
  - Pulmonary fibrosis [Fatal]
  - Right ventricular failure [Unknown]
  - Anaemia [Unknown]
  - Thrombocytopenia [Unknown]
  - Plasma cell myeloma [Not Recovered/Not Resolved]
